FAERS Safety Report 6760918-1 (Version None)
Quarter: 2010Q2

REPORT INFORMATION
  Report Type: 
  Country: None (occurrence: None)
  Receive Date: 20100604
  Receipt Date: 20100520
  Transmission Date: 20101027
  Serious: Yes (Death, Life-Threatening, Hospitalization)
  Sender: FDA-Public Use
  Company Number: APP201000510

PATIENT
  Age: 19 Year
  Sex: Male

DRUGS (2)
  1. CYTARABINE [Suspect]
     Indication: ACUTE MYELOID LEUKAEMIA
  2. IDARUBICIN HCL [Suspect]
     Indication: ACUTE MYELOID LEUKAEMIA

REACTIONS (6)
  - ASPERGILLUS TEST POSITIVE [None]
  - HAEMOPTYSIS [None]
  - LUNG INFILTRATION [None]
  - NEUTROPENIA [None]
  - PULMONARY VASCULAR DISORDER [None]
  - ZYGOMYCOSIS [None]
